FAERS Safety Report 5818173-2 (Version None)
Quarter: 2008Q3

REPORT INFORMATION
  Report Type: 
  Country: None (occurrence: None)
  Receive Date: 20080716
  Receipt Date: 20080630
  Transmission Date: 20090109
  Serious: Yes (Hospitalization)
  Sender: FDA-Public Use
  Company Number: US023641

PATIENT
  Age: 63 Year
  Sex: Male

DRUGS (3)
  1. MODAFINIL [Suspect]
     Indication: SLEEP APNOEA SYNDROME
     Dosage: 200 MG QD ORAL
     Route: 048
     Dates: start: 20070906, end: 20080521
  2. DEXART [Concomitant]
  3. LIDOCAINE 1% [Concomitant]

REACTIONS (2)
  - PANCREATIC CARCINOMA [None]
  - REFLUX OESOPHAGITIS [None]
